FAERS Safety Report 8678100 (Version 3)
Quarter: 2013Q4

REPORT INFORMATION
  Report Type: Spontaneous
  Country: CH (occurrence: CH)
  Receive Date: 20120723
  Receipt Date: 20131105
  Transmission Date: 20140711
  Serious: Yes (Hospitalization)
  Sender: FDA-Public Use
  Company Number: CH-MSD-1207CHE007180

PATIENT
  Age: 68 Year
  Sex: Male
  Weight: 100 kg

DRUGS (6)
  1. JANUVIA [Suspect]
     Indication: TYPE 2 DIABETES MELLITUS
     Dosage: 50 MG, QD
     Route: 048
     Dates: start: 20110118, end: 20120711
  2. BELOC-ZOK [Concomitant]
     Indication: ESSENTIAL HYPERTENSION
     Dosage: 25 MG, UNK
     Route: 048
  3. ENATEC [Concomitant]
     Indication: ESSENTIAL HYPERTENSION
     Dosage: 10 MG, UNK
     Route: 048
  4. EZETROL [Concomitant]
     Indication: HYPERLIPIDAEMIA
     Dosage: 10 MG, UNK
     Route: 048
  5. FOSRENOL [Concomitant]
     Indication: RENAL FAILURE CHRONIC
     Dosage: 750 MG, DAILY
     Route: 048
     Dates: start: 20120416
  6. CALCIUM (UNSPECIFIED) [Concomitant]
     Indication: ELECTROLYTE IMBALANCE
     Dosage: 1 G, UNK
     Route: 048
     Dates: start: 20120416

REACTIONS (2)
  - Hypoglycaemia [Recovered/Resolved]
  - Anaemia [Not Recovered/Not Resolved]
